FAERS Safety Report 10151397 (Version 2)
Quarter: 2014Q2

REPORT INFORMATION
  Report Type: Spontaneous
  Country: JP (occurrence: JP)
  Receive Date: 20140502
  Receipt Date: 20140521
  Transmission Date: 20141212
  Serious: Yes (Other)
  Sender: FDA-Public Use
  Company Number: PHHY2014JP052879

PATIENT
  Age: 79 Year
  Sex: Female

DRUGS (1)
  1. EXELON PATCH [Suspect]
     Indication: DEMENTIA ALZHEIMER^S TYPE
     Dosage: 13.5 MG, DAILY
     Route: 062

REACTIONS (5)
  - Pneumonia aspiration [Unknown]
  - Pyrexia [Recovering/Resolving]
  - Dysphagia [Unknown]
  - Vomiting [Unknown]
  - Nausea [Unknown]
